FAERS Safety Report 15301917 (Version 1)
Quarter: 2018Q3

REPORT INFORMATION
  Report Type: Spontaneous
  Country: HR (occurrence: HR)
  Receive Date: 20180821
  Receipt Date: 20180821
  Transmission Date: 20181010
  Serious: Yes (Other)
  Sender: FDA-Public Use
  Company Number: HR-TEVA-2018-HR-944721

PATIENT
  Age: 60 Year
  Sex: Female

DRUGS (2)
  1. NORMABEL [Suspect]
     Active Substance: DIAZEPAM
     Dosage: 1 DOSAGE FORMS DAILY;
     Route: 048
     Dates: start: 20180527, end: 20180527
  2. VOLTAREN [Suspect]
     Active Substance: DICLOFENAC SODIUM
     Dosage: 1 DOSAGE FORMS DAILY;
     Route: 048
     Dates: start: 20180527, end: 20180527

REACTIONS (3)
  - Somnolence [Unknown]
  - Intentional overdose [Unknown]
  - Suicide attempt [Unknown]

NARRATIVE: CASE EVENT DATE: 20180527
